FAERS Safety Report 13328936 (Version 1)
Quarter: 2017Q1

REPORT INFORMATION
  Report Type: Spontaneous
  Country: US (occurrence: US)
  Receive Date: 20170310
  Receipt Date: 20170310
  Transmission Date: 20170428
  Serious: No
  Sender: FDA-Public Use
  Company Number: None

PATIENT
  Sex: Female

DRUGS (1)
  1. JAKAFI [Suspect]
     Active Substance: RUXOLITINIB
     Indication: POLYCYTHAEMIA VERA
     Route: 048
     Dates: start: 20151023

REACTIONS (6)
  - Weight decreased [None]
  - Vomiting [None]
  - Feeling abnormal [None]
  - Diarrhoea [None]
  - Memory impairment [None]
  - Nausea [None]
